FAERS Safety Report 9660689 (Version 2)
Quarter: 2013Q4

REPORT INFORMATION
  Report Type: Report from Study
  Country: CH (occurrence: CH)
  Receive Date: 20131031
  Receipt Date: 20131115
  Transmission Date: 20140711
  Serious: Yes (Hospitalization)
  Sender: FDA-Public Use
  Company Number: CH-ABBVIE-13P-151-1160920-00

PATIENT
  Age: 44 Year
  Sex: Female
  Weight: 62 kg

DRUGS (3)
  1. HUMIRA [Suspect]
     Indication: PSORIASIS
     Route: 058
     Dates: start: 20121023
  2. HUMIRA [Suspect]
     Route: 058
     Dates: start: 20121023
  3. KENACORT [Concomitant]
     Indication: PSORIASIS

REACTIONS (3)
  - Incisional hernia [Recovered/Resolved]
  - Local swelling [Unknown]
  - Abdominal pain [Unknown]
